FAERS Safety Report 5169507-6 (Version None)
Quarter: 2006Q4

REPORT INFORMATION
  Report Type: 
  Country: None (occurrence: None)
  Receive Date: 20061211
  Receipt Date: 20061208
  Transmission Date: 20070319
  Serious: Yes (Hospitalization)
  Sender: FDA-Public Use
  Company Number: US-ALLERGAN-0608409US

PATIENT
  Sex: Female

DRUGS (10)
  1. BOTOX [Suspect]
     Indication: DRUG USE FOR UNKNOWN INDICATION
     Dosage: 90 UNITS, SINGLE
     Route: 030
     Dates: start: 20061130, end: 20061130
  2. VALIUM [Concomitant]
     Indication: MUSCLE SPASMS
  3. FLEXERIL                           /00428402/ [Concomitant]
     Indication: MUSCLE SPASMS
  4. LIPITOR [Concomitant]
     Indication: BLOOD CHOLESTEROL
  5. NEURONTIN [Concomitant]
     Indication: PAIN
  6. ATENOLOL [Concomitant]
     Indication: BLOOD PRESSURE
  7. DILAUDID                           /00080902/ [Concomitant]
     Indication: PAIN
  8. LISINOPRIL [Concomitant]
     Indication: BLOOD PRESSURE
  9. HYDROCHLOROTHIAZIDE [Concomitant]
     Indication: DIURETIC THERAPY
  10. ZOLOFT                             /01011401/ [Concomitant]
     Indication: DEPRESSION

REACTIONS (1)
  - DIARRHOEA [None]
